FAERS Safety Report 21569726 (Version 1)
Quarter: 2022Q4

REPORT INFORMATION
  Report Type: Spontaneous
  Country: US (occurrence: US)
  Receive Date: 20221109
  Receipt Date: 20221109
  Transmission Date: 20230113
  Serious: Yes (Other)
  Sender: FDA-Public Use
  Company Number: US-SANOFI-01349317

PATIENT
  Age: 62 Year
  Sex: Female

DRUGS (2)
  1. LANTUS SOLOSTAR [Suspect]
     Active Substance: INSULIN GLARGINE
     Indication: Type 1 diabetes mellitus
     Dosage: 20 U, Q12H; 20 UNITS TWICE AND DRUG TREATMENT DURATION:MAYBE THREE WEEKS
  2. TRESIBA [Concomitant]
     Active Substance: INSULIN DEGLUDEC
     Dosage: UNK

REACTIONS (3)
  - Pancreatic carcinoma [Unknown]
  - Injection site bruising [Unknown]
  - Inappropriate schedule of product administration [Unknown]
